FAERS Safety Report 4978459-0 (Version None)
Quarter: 2006Q1

REPORT INFORMATION
  Report Type: 
  Country: None (occurrence: None)
  Receive Date: 20060227
  Receipt Date: 20050824
  Transmission Date: 20060701
  Serious: Yes (Congenital Anomaly, Other)
  Sender: FDA-Public Use
  Company Number: WAES 0508USA04036

PATIENT
  Age: 53 Year
  Sex: Female

DRUGS (2)
  1. ZOCOR [Suspect]
     Indication: BLOOD CHOLESTEROL INCREASED
     Dosage: 20 MG/DAILY
     Dates: start: 20030901, end: 20041001
  2. ZIAC [Concomitant]

REACTIONS (1)
  - CATARACT [None]
